FAERS Safety Report 6816986-1 (Version None)
Quarter: 2010Q3

REPORT INFORMATION
  Report Type: 
  Country: None (occurrence: None)
  Receive Date: 20100706
  Receipt Date: 20100624
  Transmission Date: 20110219
  Serious: Yes (Other)
  Sender: FDA-Public Use
  Company Number: PHHY2010FR30554

PATIENT
  Sex: Female
  Weight: 80 kg

DRUGS (17)
  1. RASILEZ [Suspect]
     Dosage: 300 MG/DAY
     Dates: start: 20100121, end: 20100305
  2. RASILEZ [Suspect]
     Dosage: 300 MG, UNK
     Dates: start: 20100201, end: 20100222
  3. ZESTRIL [Concomitant]
  4. DILTIAZEM [Concomitant]
  5. ZESTORETIC [Concomitant]
  6. FUROSEMIDE [Concomitant]
  7. DILTIAZEM [Concomitant]
  8. PLAVIX [Concomitant]
  9. TAHOR [Concomitant]
  10. CORTANCYL [Concomitant]
  11. ARAVA [Concomitant]
  12. INIPOMP [Concomitant]
  13. SINGULAIR [Concomitant]
  14. SPIRIVA [Concomitant]
  15. SERETIDE [Concomitant]
  16. ORAL ANTIDIABETICS [Concomitant]
  17. INSULIN [Concomitant]

REACTIONS (3)
  - ANAPHYLACTIC REACTION [None]
  - EYELID OEDEMA [None]
  - PERIORBITAL OEDEMA [None]
